FAERS Safety Report 19070071 (Version 2)
Quarter: 2021Q2

REPORT INFORMATION
  Report Type: Report from Study
  Country: US (occurrence: US)
  Receive Date: 20210329
  Receipt Date: 20210428
  Transmission Date: 20210717
  Serious: Yes (Hospitalization, Other)
  Sender: FDA-Public Use
  Company Number: US-GILEAD-2021-0522693

PATIENT
  Age: 56 Year
  Sex: Male

DRUGS (12)
  1. FLUDARABINE [Concomitant]
     Active Substance: FLUDARABINE PHOSPHATE
     Indication: BONE MARROW CONDITIONING REGIMEN
     Dosage: UNK, QD
     Dates: start: 20210308, end: 20210310
  2. DEXAMETHASONE. [Concomitant]
     Active Substance: DEXAMETHASONE
     Dosage: 4 MG, BID
     Route: 065
     Dates: start: 20210413
  3. DEXAMETHASONE. [Concomitant]
     Active Substance: DEXAMETHASONE
     Dosage: 10 MG BID
     Route: 065
     Dates: start: 20210402
  4. OXYGEN. [Concomitant]
     Active Substance: OXYGEN
     Dosage: 2 L
     Route: 045
     Dates: start: 20210310
  5. KTE?X19 [Suspect]
     Active Substance: BREXUCABTAGENE AUTOLEUCEL
     Indication: MANTLE CELL LYMPHOMA
     Dosage: 2X10^8, ONCE
     Route: 042
     Dates: start: 20210313, end: 20210313
  6. DEXAMETHASONE. [Concomitant]
     Active Substance: DEXAMETHASONE
     Indication: MANTLE CELL LYMPHOMA
     Dosage: 10 MG
     Dates: start: 20210310
  7. CYCLOPHOSPHAMIDE. [Concomitant]
     Active Substance: CYCLOPHOSPHAMIDE
     Indication: BONE MARROW CONDITIONING REGIMEN
     Dosage: UNK, QD
     Dates: start: 20210308, end: 20210310
  8. OXYGEN. [Concomitant]
     Active Substance: OXYGEN
     Dosage: UNK, REQUIREMENT DECREASING
     Dates: start: 20210324
  9. DEXAMETHASONE. [Concomitant]
     Active Substance: DEXAMETHASONE
     Dosage: 2 MG, BID
     Route: 065
     Dates: start: 20210416
  10. DEXAMETHASONE. [Concomitant]
     Active Substance: DEXAMETHASONE
     Dosage: 10 MG BID
     Route: 065
     Dates: start: 20210331
  11. DEXAMETHASONE. [Concomitant]
     Active Substance: DEXAMETHASONE
     Dosage: 6 MG, TID
     Route: 065
     Dates: start: 20210406
  12. OXYGEN. [Concomitant]
     Active Substance: OXYGEN
     Dosage: 8 L
     Route: 045
     Dates: start: 20210319

REACTIONS (8)
  - Tumour lysis syndrome [Unknown]
  - Renal failure [Unknown]
  - Cytokine release syndrome [Unknown]
  - Mantle cell lymphoma [Unknown]
  - Staphylococcal infection [Recovering/Resolving]
  - Immune effector cell-associated neurotoxicity syndrome [Recovering/Resolving]
  - Septic shock [Recovering/Resolving]
  - Rash [Recovering/Resolving]

NARRATIVE: CASE EVENT DATE: 20210318
